FAERS Safety Report 16522748 (Version 1)
Quarter: 2019Q3

REPORT INFORMATION
  Report Type: Spontaneous
  Country: JP (occurrence: JP)
  Receive Date: 20190702
  Receipt Date: 20190702
  Transmission Date: 20191004
  Serious: Yes (Other)
  Sender: FDA-Public Use
  Company Number: JP-JNJFOC-20190630001

PATIENT
  Age: 79 Year
  Sex: Male

DRUGS (6)
  1. ETIZOLAM [Concomitant]
     Active Substance: ETIZOLAM
  2. ELDECALCITOL [Concomitant]
     Active Substance: ELDECALCITOL
  3. SODIUM RABEPRAZOLE [Concomitant]
     Active Substance: RABEPRAZOLE SODIUM
  4. AMLODIPINE [Suspect]
     Active Substance: AMLODIPINE BESYLATE
     Indication: PRODUCT USED FOR UNKNOWN INDICATION
  5. MINODRONIC ACID [Concomitant]
     Active Substance: MINODRONIC ACID
  6. XARELTO [Suspect]
     Active Substance: RIVAROXABAN
     Indication: PRODUCT USED FOR UNKNOWN INDICATION
     Dosage: 10 MG, QD
     Route: 048

REACTIONS (4)
  - Traumatic fracture [Recovered/Resolved]
  - Off label use [Unknown]
  - Fall [Recovered/Resolved]
  - Chest discomfort [Recovered/Resolved]
